FAERS Safety Report 5361195-9 (Version None)
Quarter: 2007Q2

REPORT INFORMATION
  Report Type: 
  Country: None (occurrence: None)
  Receive Date: 20070614
  Receipt Date: 20070531
  Transmission Date: 20071010
  Serious: Yes (Death)
  Sender: FDA-Public Use
  Company Number: S07-SWI-02228-01

PATIENT
  Sex: Male

DRUGS (2)
  1. ESCITALOPRAM [Suspect]
  2. ZOLOFT [Concomitant]

REACTIONS (1)
  - COMPLETED SUICIDE [None]
